FAERS Safety Report 6534287-6 (Version None)
Quarter: 2009Q4

REPORT INFORMATION
  Report Type: 
  Country: None (occurrence: None)
  Receive Date: 20091214
  Receipt Date: 20090310
  Transmission Date: 20100525
  Serious: Yes (Other)
  Sender: FDA-Public Use
  Company Number: 578146

PATIENT
  Age: 46 Year
  Sex: Female

DRUGS (2)
  1. PEGASYS [Suspect]
     Indication: HEPATITIS C
     Dosage: 180 UG 1 PER WEEK
     Dates: start: 20080104, end: 20090220
  2. RIBAVIRIN [Suspect]
     Indication: HEPATITIS C
     Dosage: 1000 MG DAILY
     Dates: start: 20080104, end: 20090220

REACTIONS (12)
  - AGITATION [None]
  - CONTUSION [None]
  - FURUNCLE [None]
  - INJECTION SITE REACTION [None]
  - INSOMNIA [None]
  - PALPITATIONS [None]
  - PRURITUS [None]
  - PURULENCE [None]
  - SKIN HAEMORRHAGE [None]
  - THERAPEUTIC RESPONSE DELAYED [None]
  - THYROID FUNCTION TEST ABNORMAL [None]
  - WHITE BLOOD CELL COUNT DECREASED [None]
